FAERS Safety Report 7434301-X (Version None)
Quarter: 2011Q2

REPORT INFORMATION
  Report Type: 
  Country: None (occurrence: None)
  Receive Date: 20110425
  Receipt Date: 20110419
  Transmission Date: 20111010
  Serious: No
  Sender: FDA-Public Use
  Company Number: US-PFIZER INC-2011086049

PATIENT
  Sex: Female
  Weight: 47.62 kg

DRUGS (1)
  1. ADVIL CONGESTION RELIEF [Suspect]
     Indication: NASAL CONGESTION
     Dosage: 1 TABLET, SINGLE
     Route: 048
     Dates: start: 20110419, end: 20110419

REACTIONS (1)
  - DRUG INEFFECTIVE [None]
